FAERS Safety Report 10104135 (Version 2)
Quarter: 2014Q3

REPORT INFORMATION
  Report Type: Other
  Country: US (occurrence: US)
  Receive Date: 20140424
  Receipt Date: 20140910
  Transmission Date: 20150326
  Serious: Yes (Death, Hospitalization, Other)
  Sender: FDA-Public Use
  Company Number: US-GSKPPD-2014GSK003601

PATIENT
  Age: 55 Year
  Sex: Female

DRUGS (3)
  1. LANOXIN [Concomitant]
     Active Substance: DIGOXIN
  2. MICARDIS [Concomitant]
     Active Substance: TELMISARTAN
  3. AVANDIA [Suspect]
     Active Substance: ROSIGLITAZONE MALEATE
     Indication: DIABETES MELLITUS
     Route: 048
     Dates: start: 2002, end: 2004

REACTIONS (2)
  - Cerebrovascular accident [Recovered/Resolved with Sequelae]
  - Renal failure chronic [Fatal]

NARRATIVE: CASE EVENT DATE: 20000110
